FAERS Safety Report 7442131-8 (Version None)
Quarter: 2011Q2

REPORT INFORMATION
  Report Type: 
  Country: None (occurrence: None)
  Receive Date: 20110428
  Receipt Date: 20110415
  Transmission Date: 20111010
  Serious: Yes (Other)
  Sender: FDA-Public Use
  Company Number: PHHY2011BR33396

PATIENT
  Sex: Female

DRUGS (7)
  1. TRILEPTAL [Suspect]
     Dosage: 600 MG, UNK
  2. ENALAPRIL [Suspect]
     Dosage: 10 MG, UNK
  3. TRILEPTAL [Suspect]
     Dosage: 300 MG, 1/2 A TABLET
  4. ASPIRIN [Suspect]
     Dosage: 100 MG, UNK
  5. METFORMIN [Suspect]
     Dosage: UNK
  6. RIVOTRIL [Suspect]
     Dosage: 2 MG, UNK
  7. CITALOPRAM [Suspect]
     Dosage: 20 MG, UNK

REACTIONS (2)
  - NAUSEA [None]
  - HEPATIC STEATOSIS [None]
